FAERS Safety Report 10194845 (Version 2)
Quarter: 2014Q2

REPORT INFORMATION
  Report Type: Spontaneous
  Country: US (occurrence: US)
  Receive Date: 20140526
  Receipt Date: 20140602
  Transmission Date: 20141212
  Serious: Yes (Other)
  Sender: FDA-Public Use
  Company Number: US-DRREDDYS-USA/USA/14/0040549

PATIENT
  Age: 63 Year
  Sex: Female
  Weight: 61.23 kg

DRUGS (2)
  1. MUCINEX ALLERGY (FEXOFENADINE) [Suspect]
     Indication: HYPERSENSITIVITY
     Route: 048
     Dates: start: 20140511
  2. NASCORT [Suspect]
     Indication: HYPERSENSITIVITY
     Route: 045

REACTIONS (1)
  - Epistaxis [Not Recovered/Not Resolved]
